FAERS Safety Report 5139351-4 (Version None)
Quarter: 2006Q4

REPORT INFORMATION
  Report Type: 
  Country: None (occurrence: None)
  Receive Date: 20061030
  Receipt Date: 20051206
  Transmission Date: 20070319
  Serious: Yes (Life-Threatening)
  Sender: FDA-Public Use
  Company Number: DE-NOVOPROD-249121

PATIENT
  Age: 63 Year
  Sex: Male
  Weight: 90 kg

DRUGS (25)
  1. NOVOSEVEN [Suspect]
     Indication: CEREBRAL HAEMORRHAGE
     Dosage: 80 UG/KG, UNK
     Route: 042
     Dates: start: 20051107, end: 20051107
  2. URAPIDIL [Concomitant]
     Indication: HYPERTENSION
     Dates: start: 20051107
  3. POTASSIUM CHLORIDE [Concomitant]
     Indication: HYPOKALAEMIA
     Dates: start: 20051107
  4. PROPRANOLOL [Concomitant]
     Indication: HYPERTENSION
     Dates: start: 20051113
  5. ESOMEPRAZOLE MAGNESIUM [Concomitant]
     Indication: PROPHYLAXIS
     Dates: start: 20051108
  6. ENALAPRIL MALEATE [Concomitant]
     Indication: HYPERTENSION
     Dates: start: 20051113
  7. SIMVASTATIN [Concomitant]
     Indication: HYPERLIPIDAEMIA
     Dates: start: 20051108
  8. ACTRAPID [Concomitant]
     Indication: DIABETES MELLITUS
     Dates: start: 20051108
  9. FUROSEMIDE [Concomitant]
     Indication: DIURETIC THERAPY
     Dates: start: 20051109
  10. CEFUROXIME [Concomitant]
     Indication: INFLAMMATION
     Dates: start: 20051110, end: 20051117
  11. ACETAMINOPHEN [Concomitant]
     Indication: PYREXIA
     Dates: start: 20051117, end: 20051126
  12. NADROPARIN CALCIUM [Concomitant]
     Indication: PROPHYLAXIS
     Dates: start: 20051108
  13. LORAZEPAM [Concomitant]
     Indication: PROPHYLAXIS
     Dates: start: 20051116
  14. GENTAMYCIN-MP [Concomitant]
     Dates: start: 20051119
  15. AMLODIPINE [Concomitant]
     Indication: HYPERTENSION
     Dates: start: 20051115
  16. TOBRAMYCIN [Concomitant]
     Indication: PROPHYLAXIS
     Dates: start: 20051108, end: 20051130
  17. AMPHOTERICIN B [Concomitant]
     Indication: PROPHYLAXIS
     Dates: start: 20051108, end: 20051130
  18. TRIMIPRAMINE MALEATE [Concomitant]
     Indication: ANXIETY DISORDER
     Dates: start: 20051116
  19. PROTAPHANE [Concomitant]
     Indication: DIABETES MELLITUS
     Dates: start: 20051120
  20. ERYTHROMYCIN [Concomitant]
     Indication: IMPAIRED GASTRIC EMPTYING
     Dates: start: 20051112, end: 20051123
  21. PIPERACILLIN [Concomitant]
     Indication: INFECTION
     Dates: start: 20051120, end: 20051126
  22. DIHYDRALAZINE SULFATE [Concomitant]
     Indication: HYPERTENSION
     Dates: start: 20051112
  23. PIRITRAMIDE [Concomitant]
     Indication: ANALGESIC EFFECT
     Dates: start: 20051117
  24. PANTOPRAZOLE SODIUM [Concomitant]
     Indication: GASTRIC ULCER
     Dates: start: 20051108, end: 20051112
  25. GENTAMICIN SULFATE [Concomitant]
     Indication: INFECTION

REACTIONS (6)
  - BLOOD PRESSURE INCREASED [None]
  - BRAIN COMPRESSION [None]
  - BRAIN OEDEMA [None]
  - BUNDLE BRANCH BLOCK RIGHT [None]
  - CARDIAC ARREST [None]
  - DIABETES MELLITUS [None]
